FAERS Safety Report 8820647 (Version 2)
Quarter: 2012Q4

REPORT INFORMATION
  Report Type: Report from Study
  Country: US (occurrence: US)
  Receive Date: 20121002
  Receipt Date: 20121023
  Transmission Date: 20130627
  Serious: Yes (Other)
  Sender: FDA-Public Use
  Company Number: US-US-EMD SERONO, INC.-7163595

PATIENT
  Sex: Male
  Weight: 110 kg

DRUGS (2)
  1. REBIF [Suspect]
     Indication: PROGRESSIVE MULTIPLE SCLEROSIS
     Route: 058
     Dates: start: 20060614
  2. BABY ASPIRIN [Concomitant]
     Indication: TRANSIENT ISCHAEMIC ATTACK

REACTIONS (8)
  - Prostatic disorder [Unknown]
  - Intervertebral disc disorder [Not Recovered/Not Resolved]
  - Muscular weakness [Not Recovered/Not Resolved]
  - Contusion [Unknown]
  - Feeling abnormal [Unknown]
  - Urinary incontinence [Not Recovered/Not Resolved]
  - Progressive multiple sclerosis [Not Recovered/Not Resolved]
  - Injection site erythema [Unknown]
